FAERS Safety Report 18640819 (Version 2)
Quarter: 2021Q3

REPORT INFORMATION
  Report Type: Other
  Country: FR (occurrence: FR)
  Receive Date: 20201221
  Receipt Date: 20210824
  Transmission Date: 20211014
  Serious: Yes (Other)
  Sender: FDA-Public Use
  Company Number: FR-ROCHE-2730794

PATIENT
  Age: 946 Month
  Sex: Female
  Weight: 46 kg

DRUGS (2)
  1. OBINUTUZUMAB. [Suspect]
     Active Substance: OBINUTUZUMAB
     Indication: CHRONIC LYMPHOCYTIC LEUKAEMIA
     Route: 042
  2. ACALABRUTINIB. [Suspect]
     Active Substance: ACALABRUTINIB
     Indication: CHRONIC LYMPHOCYTIC LEUKAEMIA
     Route: 048
     Dates: start: 20201016, end: 2020

REACTIONS (11)
  - Platelet count abnormal [Unknown]
  - General physical health deterioration [Unknown]
  - Haemorrhagic disorder [Recovering/Resolving]
  - Eastern Cooperative Oncology Group performance status worsened [Unknown]
  - Dehydration [Unknown]
  - Haemoglobin abnormal [Unknown]
  - Ecchymosis [Recovering/Resolving]
  - Neutrophil count abnormal [Unknown]
  - Petechiae [Recovering/Resolving]
  - White blood cell count abnormal [Unknown]
  - Lymphocyte count abnormal [Unknown]

NARRATIVE: CASE EVENT DATE: 20201113
